FAERS Safety Report 8593353 (Version 3)
Quarter: 2012Q4

REPORT INFORMATION
  Report Type: 
  Country: US (occurrence: US)
  Receive Date: 20120604
  Receipt Date: 20120921
  Transmission Date: 20130627
  Serious: No
  Sender: FDA-Public Use
  Company Number: US-PFIZER INC-2012129248

PATIENT
  Age: 62 Year
  Sex: Male

DRUGS (2)
  1. FLECTOR [Suspect]
     Indication: TENDONITIS
     Dosage: twice daily
     Dates: start: 20120502
  2. FLECTOR [Suspect]
     Indication: MUSCULOSKELETAL PAIN

REACTIONS (4)
  - Skin haemorrhage [Unknown]
  - Application site reaction [Unknown]
  - Ulcer [Unknown]
  - Rash [Recovered/Resolved]
